FAERS Safety Report 9275629 (Version 1)
Quarter: 2013Q2

REPORT INFORMATION
  Report Type: Spontaneous
  Country: US (occurrence: US)
  Receive Date: 20130507
  Receipt Date: 20130507
  Transmission Date: 20140414
  Serious: Yes (Life-Threatening, Hospitalization)
  Sender: FDA-Public Use
  Company Number: US-ASTRAZENECA-2013SE30553

PATIENT
  Age: 37 Year
  Sex: Male

DRUGS (3)
  1. QUETIAPINE [Suspect]
     Indication: AGITATION
     Route: 048
  2. QUETIAPINE [Suspect]
     Indication: PSYCHOTIC DISORDER
     Route: 048
  3. HALOPERIDOL [Suspect]
     Indication: ABNORMAL BEHAVIOUR

REACTIONS (3)
  - Central nervous system lesion [Recovered/Resolved]
  - Basal ganglion degeneration [Recovered/Resolved]
  - Neuroleptic malignant syndrome [Recovered/Resolved]
